FAERS Safety Report 8133040-X (Version None)
Quarter: 2012Q1

REPORT INFORMATION
  Report Type: 
  Country: None (occurrence: None)
  Receive Date: 20120213
  Receipt Date: 20120206
  Transmission Date: 20120608
  Serious: Yes (Other)
  Sender: FDA-Public Use
  Company Number: PHHY2012MX010906

PATIENT
  Sex: Female

DRUGS (2)
  1. AKSPRI [Suspect]
     Indication: DIABETES MELLITUS
     Dosage: 2 DF (500 MG), DAILY
     Dates: start: 20100601
  2. DIOVAN HCT [Suspect]
     Indication: HYPERTENSION
     Dosage: 1 DF (160/12.5 MG), DAILY
     Dates: start: 20100601

REACTIONS (2)
  - FALL [None]
  - BEDRIDDEN [None]
